FAERS Safety Report 24865176 (Version 4)
Quarter: 2025Q2

REPORT INFORMATION
  Report Type: Report from Study
  Country: CA (occurrence: CA)
  Receive Date: 20250121
  Receipt Date: 20250411
  Transmission Date: 20250716
  Serious: Yes (Other)
  Sender: TAKEDA
  Company Number: CA-TAKEDA-2025TUS004076

PATIENT
  Sex: Male

DRUGS (9)
  1. VEDOLIZUMAB [Suspect]
     Active Substance: VEDOLIZUMAB
     Indication: Colitis ulcerative
  2. VEDOLIZUMAB [Suspect]
     Active Substance: VEDOLIZUMAB
  3. BUDESONIDE [Concomitant]
     Active Substance: BUDESONIDE
  4. ENTOCORT [Concomitant]
     Active Substance: BUDESONIDE
  5. Cortiment [Concomitant]
  6. Salofalk [Concomitant]
  7. PENTASA [Concomitant]
     Active Substance: MESALAMINE
  8. PREDNISONE [Concomitant]
     Active Substance: PREDNISONE
  9. UCERIS [Concomitant]
     Active Substance: BUDESONIDE

REACTIONS (6)
  - Colitis ulcerative [Unknown]
  - Haematochezia [Unknown]
  - Defaecation urgency [Unknown]
  - Frequent bowel movements [Unknown]
  - Rectal tenesmus [Unknown]
  - Abdominal pain [Unknown]
